FAERS Safety Report 25273331 (Version 1)
Quarter: 2025Q2

REPORT INFORMATION
  Report Type: Spontaneous
  Country: US (occurrence: US)
  Receive Date: 20250506
  Receipt Date: 20250506
  Transmission Date: 20250716
  Serious: Yes (Other)
  Sender: AMNEAL
  Company Number: US-AMNEAL PHARMACEUTICALS-2025-AMRX-00871

PATIENT
  Sex: Male
  Weight: 29.478 kg

DRUGS (3)
  1. VIGABATRIN [Suspect]
     Active Substance: VIGABATRIN
     Indication: Epilepsy
     Dosage: 500 MILLIGRAM (MIX 2 PACKETS IN 20 ML OF WATER AND GIVE/TAKE 16 ML (800 MG) THROUGH JEJUNAL TUBE TWI
     Route: 050
  2. VIGABATRIN [Suspect]
     Active Substance: VIGABATRIN
     Indication: Seizure
  3. EPIDIOLEX [Concomitant]
     Active Substance: CANNABIDIOL
     Indication: Product used for unknown indication
     Route: 065

REACTIONS (3)
  - Seizure [Unknown]
  - Drug ineffective [Unknown]
  - Vomiting [Unknown]
